FAERS Safety Report 9880347 (Version 1)
Quarter: 2014Q1

REPORT INFORMATION
  Report Type: Spontaneous
  Country: US (occurrence: None)
  Receive Date: 20140204
  Receipt Date: 20140204
  Transmission Date: 20141002
  Serious: Yes (Death)
  Sender: FDA-Public Use
  Company Number: ABR_01458_2014

PATIENT
  Age: 18 Year
  Sex: Female

DRUGS (3)
  1. AMPHETAMINE [Suspect]
     Indication: PRODUCT USED FOR UNKNOWN INDICATION
     Dosage: DF UNKNOWN UNTIL NOT CONTINUING?
  2. METHAMPHETAMINE (NOT SPECIFIED) [Suspect]
     Indication: PRODUCT USED FOR UNKNOWN INDICATION
     Dosage: DF UNKNOWN UNTIL NOT CONTINUING??
  3. HEROIN [Suspect]
     Indication: PRODUCT USED FOR UNKNOWN INDICATION
     Dosage: UNKNOWN UNTIL NOT CONTINUING??

REACTIONS (1)
  - Poisoning [None]
